FAERS Safety Report 9256859 (Version 1)
Quarter: 2013Q2

REPORT INFORMATION
  Report Type: Spontaneous
  Country: SE (occurrence: None)
  Receive Date: 20130423
  Receipt Date: 20130423
  Transmission Date: 20140414
  Serious: Yes (Other)
  Sender: FDA-Public Use
  Company Number: AUR-APL-2013-03149

PATIENT
  Sex: Male

DRUGS (4)
  1. RAMIPRIL (RAMIPRIL) [Suspect]
     Indication: HYPERTENSION
     Dates: start: 20120929
  2. KREON (PANCREATIN) [Concomitant]
  3. FURIX (FUROSEMIDE) [Concomitant]
  4. FRAGMIN (HEPARIN-FRACTION, SODIUM SALT) [Concomitant]

REACTIONS (1)
  - Breast pain [None]
